FAERS Safety Report 6818833-0 (Version None)
Quarter: 2010Q2

REPORT INFORMATION
  Report Type: 
  Country: None (occurrence: None)
  Receive Date: 20100630
  Receipt Date: 20100617
  Transmission Date: 20101027
  Serious: Yes (Hospitalization)
  Sender: FDA-Public Use
  Company Number: 625771

PATIENT
  Age: 41 Year
  Sex: Male

DRUGS (3)
  1. (CALCIUM FOLINATE) [Suspect]
     Indication: RECTAL CANCER
     Dosage: 800 MG MILLIGRAM(S),
     Dates: start: 20100608, end: 20100608
  2. OXALIPLATIN [Suspect]
     Indication: RECTAL CANCER
     Dosage: 200 MG MILLIGRAM(S),
     Dates: start: 20100608, end: 20100608
  3. FLUOROURACIL [Suspect]
     Indication: RECTAL CANCER
     Dosage: 4750 MG MILLIGRAM(S),
     Dates: start: 20100608, end: 20100608

REACTIONS (3)
  - HEADACHE [None]
  - MALAISE [None]
  - PYREXIA [None]
